FAERS Safety Report 5726346-2 (Version None)
Quarter: 2008Q2

REPORT INFORMATION
  Report Type: 
  Country: None (occurrence: None)
  Receive Date: 20080502
  Receipt Date: 20080428
  Transmission Date: 20081010
  Serious: Yes (Life-Threatening, Hospitalization)
  Sender: FDA-Public Use
  Company Number: US-GILEAD-2008-0015946

PATIENT
  Sex: Female
  Weight: 118.49 kg

DRUGS (19)
  1. LETAIRIS [Suspect]
     Indication: PULMONARY HYPERTENSION
     Dates: end: 20080328
  2. SEREVENT [Concomitant]
  3. OXYGEN [Concomitant]
     Route: 055
  4. SPIRIVA [Concomitant]
  5. ZANTAC [Concomitant]
  6. COUMADIN [Concomitant]
     Indication: ATRIAL FIBRILLATION
  7. MEDROL [Concomitant]
  8. WELLBUTRIN [Concomitant]
     Indication: DEPRESSION
     Route: 048
  9. XANAX [Concomitant]
     Indication: ANXIETY
     Route: 048
  10. CELEXA [Concomitant]
     Indication: DEPRESSION
     Route: 048
  11. LASIX [Concomitant]
  12. KLOR-CON [Concomitant]
  13. CALCIUM [Concomitant]
  14. CARDIZEM [Concomitant]
  15. DIGOXIN [Concomitant]
  16. SINGULAIR [Concomitant]
  17. CONTINUOUS POSITIVE AIRWAY PRESSURE [Concomitant]
     Indication: SLEEP APNOEA SYNDROME
  18. ALBUTEROL [Concomitant]
  19. FLOVENT [Concomitant]

REACTIONS (4)
  - CHRONIC OBSTRUCTIVE PULMONARY DISEASE [None]
  - COR PULMONALE [None]
  - FLUID RETENTION [None]
  - RESPIRATORY FAILURE [None]
